FAERS Safety Report 7588623-2 (Version None)
Quarter: 2011Q3

REPORT INFORMATION
  Report Type: 
  Country: None (occurrence: None)
  Receive Date: 20110705
  Receipt Date: 20110701
  Transmission Date: 20111222
  Serious: Yes (Death, Hospitalization, Other)
  Sender: FDA-Public Use
  Company Number: US-BRISTOL-MYERS SQUIBB COMPANY-15690159

PATIENT
  Age: 70 Year
  Sex: Female

DRUGS (1)
  1. SPRYCEL [Suspect]
     Dosage: SPRYCEL TAKEN FOR LESS THAN 3 WEEKS
     Dates: start: 20110301

REACTIONS (4)
  - PNEUMONIA [None]
  - MYOCARDIAL INFARCTION [None]
  - DEATH [None]
  - PULMONARY OEDEMA [None]
